FAERS Safety Report 7625555-5 (Version None)
Quarter: 2011Q3

REPORT INFORMATION
  Report Type: 
  Country: None (occurrence: None)
  Receive Date: 20110721
  Receipt Date: 20110713
  Transmission Date: 20111222
  Serious: Yes (Hospitalization, Other)
  Sender: FDA-Public Use
  Company Number: US-ASTELLAS-2011US004013

PATIENT
  Age: 51 Year
  Sex: Female

DRUGS (2)
  1. CELLCEPT [Suspect]
     Indication: RENAL TRANSPLANT
     Dosage: UNK
     Route: 065
  2. PROGRAF [Suspect]
     Indication: RENAL TRANSPLANT
     Dosage: UNK
     Route: 065

REACTIONS (6)
  - NEPHROLITHIASIS [None]
  - SEPTIC SHOCK [None]
  - UROSEPSIS [None]
  - EMPHYSEMATOUS PYELONEPHRITIS [None]
  - DIABETIC KETOACIDOSIS [None]
  - RENAL FAILURE [None]
